FAERS Safety Report 25550733 (Version 3)
Quarter: 2025Q3

REPORT INFORMATION
  Report Type: Spontaneous
  Country: BR (occurrence: BR)
  Receive Date: 20250714
  Receipt Date: 20250725
  Transmission Date: 20251021
  Serious: Yes (Death, Other)
  Sender: NOVARTIS
  Company Number: BR-002147023-NVSC2025BR111414

PATIENT
  Age: 47 Year
  Sex: Male
  Weight: 110 kg

DRUGS (1)
  1. COSENTYX [Suspect]
     Active Substance: SECUKINUMAB
     Indication: Psoriasis
     Dosage: 300 MG, Q4W
     Route: 058
     Dates: start: 20221129, end: 20250602

REACTIONS (30)
  - Acute myocardial infarction [Fatal]
  - Arteriosclerosis coronary artery [Fatal]
  - Hypertension [Fatal]
  - Loss of consciousness [Unknown]
  - Cardio-respiratory arrest [Unknown]
  - Agitation [Unknown]
  - Chest pain [Unknown]
  - Vomiting [Unknown]
  - Low density lipoprotein abnormal [Unknown]
  - Blood cholesterol abnormal [Unknown]
  - Blood urea abnormal [Unknown]
  - Pallor [Unknown]
  - Pain [Unknown]
  - Oedema peripheral [Unknown]
  - Chest discomfort [Unknown]
  - Hyperhidrosis [Unknown]
  - Restlessness [Unknown]
  - Pain in extremity [Unknown]
  - Fatigue [Unknown]
  - Pain in jaw [Unknown]
  - Urine output decreased [Unknown]
  - Pyrexia [Unknown]
  - Dyspnoea [Unknown]
  - Palpitations [Unknown]
  - Dizziness [Unknown]
  - Musculoskeletal pain [Unknown]
  - Blood cholesterol increased [Unknown]
  - High density lipoprotein increased [Unknown]
  - Low density lipoprotein increased [Unknown]
  - Non-high-density lipoprotein cholesterol increased [Unknown]

NARRATIVE: CASE EVENT DATE: 20230331
